FAERS Safety Report 26095007 (Version 1)
Quarter: 2025Q4

REPORT INFORMATION
  Report Type: Spontaneous
  Country: EU (occurrence: EU)
  Receive Date: 20251126
  Receipt Date: 20251126
  Transmission Date: 20260117
  Serious: Yes (Death, Other)
  Sender: ALEXION PHARMACEUTICALS
  Company Number: EU-AstraZeneca-CH-00998900A

PATIENT
  Age: 77 Year
  Sex: Male

DRUGS (1)
  1. DURVALUMAB [Suspect]
     Active Substance: DURVALUMAB
     Route: 065

REACTIONS (4)
  - Septic shock [Fatal]
  - Septic cardiomyopathy [Fatal]
  - Disseminated intravascular coagulation [Fatal]
  - Neutropenia [Fatal]
